FAERS Safety Report 23195088 (Version 2)
Quarter: 2023Q4

REPORT INFORMATION
  Report Type: Report from Study
  Country: US (occurrence: US)
  Receive Date: 20231117
  Receipt Date: 20231211
  Transmission Date: 20240109
  Serious: Yes (Other)
  Sender: FDA-Public Use
  Company Number: US-ALXN-A202306748AA

PATIENT
  Sex: Female

DRUGS (2)
  1. ULTOMIRIS [Suspect]
     Active Substance: RAVULIZUMAB-CWVZ
     Indication: Myasthenia gravis
     Dosage: UNK
     Route: 065
  2. ULTOMIRIS [Suspect]
     Active Substance: RAVULIZUMAB-CWVZ
     Dosage: UNK
     Route: 042

REACTIONS (17)
  - Chronic inflammatory demyelinating polyradiculoneuropathy [Unknown]
  - Macular degeneration [Unknown]
  - Paralysis [Unknown]
  - Drug ineffective [Recovered/Resolved]
  - Muscular weakness [Unknown]
  - Grip strength decreased [Unknown]
  - General physical health deterioration [Unknown]
  - Dyspnoea [Unknown]
  - Anxiety [Unknown]
  - Feeling abnormal [Unknown]
  - Thinking abnormal [Unknown]
  - Dyspnoea exertional [Unknown]
  - Pain in extremity [Unknown]
  - Mobility decreased [Unknown]
  - Arthralgia [Unknown]
  - Myalgia [Unknown]
  - Asthenia [Unknown]
